FAERS Safety Report 14739959 (Version 2)
Quarter: 2018Q2

REPORT INFORMATION
  Report Type: Spontaneous
  Country: US (occurrence: US)
  Receive Date: 20180410
  Receipt Date: 20180412
  Transmission Date: 20180711
  Serious: No
  Sender: FDA-Public Use
  Company Number: US-PFIZER INC-2018146085

PATIENT
  Age: 68 Year
  Sex: Female
  Weight: 94.35 kg

DRUGS (7)
  1. ESTROGEN [Concomitant]
     Active Substance: ESTROGENS
     Indication: OESTROGEN THERAPY
     Dosage: UNK UNK, 1X/DAY (0.625-1.25MG)
     Route: 048
  2. POTASSIUM [Concomitant]
     Active Substance: POTASSIUM
     Indication: BLOOD POTASSIUM ABNORMAL
     Dosage: 10 MEQ, 1X/DAY
     Route: 048
     Dates: start: 20180320
  3. CHLORTHALIDONE. [Concomitant]
     Active Substance: CHLORTHALIDONE
     Indication: FLUID RETENTION
     Dosage: UNK (TAKES 25MG OR 50MG)
  4. OMEPRAZOLE. [Concomitant]
     Active Substance: OMEPRAZOLE
     Indication: GASTROOESOPHAGEAL REFLUX DISEASE
     Dosage: 40 MG, 1X/DAY (IN THE MORNING)
     Route: 048
  5. DESVENLAFAXINE ER [Suspect]
     Active Substance: DESVENLAFAXINE
     Indication: DEPRESSION
     Dosage: 50 MG, 1X/DAY
     Route: 048
     Dates: start: 2017
  6. RANITIDINE. [Concomitant]
     Active Substance: RANITIDINE
     Indication: GASTROOESOPHAGEAL REFLUX DISEASE
     Dosage: 300 MG, 1X/DAY (AT NIGHT)
     Route: 048
  7. TOVIAZ [Concomitant]
     Active Substance: FESOTERODINE FUMARATE
     Indication: INCONTINENCE
     Dosage: 8 MG, 1X/DAY
     Route: 048

REACTIONS (1)
  - Drug ineffective [Unknown]
